FAERS Safety Report 4274257-4 (Version None)
Quarter: 2004Q1

REPORT INFORMATION
  Report Type: 
  Country: None (occurrence: None)
  Receive Date: 20040115
  Receipt Date: 20040105
  Transmission Date: 20041129
  Serious: Yes (Disabling, Other)
  Sender: FDA-Public Use
  Company Number: 2003116105

PATIENT
  Age: 56 Year
  Sex: Female
  Weight: 50 kg

DRUGS (3)
  1. RELPAX [Suspect]
     Indication: MIGRAINE WITHOUT AURA
     Dosage: 80 MG (PRN), UNKNOWN
     Dates: start: 20030101, end: 20031014
  2. HEPTAMINOL HYDROCHLORIDE (HEPTAMINOL HYDROCHLORIDE) [Suspect]
     Indication: ILL-DEFINED DISORDER
     Dosage: 760 MG (QID), ORAL
     Route: 048
     Dates: start: 20031008, end: 20031026
  3. GINKGO BILOBA (GINKO BILOBA) [Suspect]
     Indication: ILL-DEFINED DISORDER
     Dosage: UNKNOWN, ORAL
     Route: 048
     Dates: start: 20031011, end: 20031102

REACTIONS (15)
  - AFFECTIVE DISORDER [None]
  - APHASIA [None]
  - ARTERIAL SPASM [None]
  - CEREBRAL ISCHAEMIA [None]
  - DISTURBANCE IN ATTENTION [None]
  - DYSARTHRIA [None]
  - DYSGEUSIA [None]
  - DYSGRAPHIA [None]
  - DYSPNOEA [None]
  - EXTENSOR PLANTAR RESPONSE [None]
  - FACIAL PALSY [None]
  - FATIGUE [None]
  - HYPOTENSION [None]
  - TRANSIENT ISCHAEMIC ATTACK [None]
  - VASOSPASM [None]
